FAERS Safety Report 24050607 (Version 1)
Quarter: 2024Q3

REPORT INFORMATION
  Report Type: Spontaneous
  Country: CN (occurrence: CN)
  Receive Date: 20240704
  Receipt Date: 20240704
  Transmission Date: 20241016
  Serious: Yes (Other)
  Sender: BEIGENE
  Company Number: CN-BEIGENE-BGN-2024-010009

PATIENT

DRUGS (4)
  1. TISLELIZUMAB [Suspect]
     Active Substance: TISLELIZUMAB
     Indication: Head and neck cancer
     Dosage: 200 MILLIGRAM Q4WK D1
     Route: 041
  2. LOBAPLATIN [Suspect]
     Active Substance: LOBAPLATIN
     Indication: Head and neck cancer
     Dosage: 50 MILLIGRAM/SQ. METER, Q4WK, D2-6
     Route: 041
  3. FLUOROURACIL [Suspect]
     Active Substance: FLUOROURACIL
     Indication: Head and neck cancer
     Dosage: 500 MILLIGRAM/SQ. METER, Q4WK, D2-6
     Route: 041
  4. CATEQUENTINIB DIHYDROCHLORIDE [Suspect]
     Active Substance: CATEQUENTINIB DIHYDROCHLORIDE
     Indication: Head and neck cancer
     Dosage: 12 MILLIGRAM/D, Q4WK, D1-14
     Route: 048

REACTIONS (1)
  - Cerebrovascular accident [Unknown]
